FAERS Safety Report 19154774 (Version 1)
Quarter: 2021Q2

REPORT INFORMATION
  Report Type: Spontaneous
  Country: US (occurrence: US)
  Receive Date: 20210419
  Receipt Date: 20210419
  Transmission Date: 20210717
  Serious: Yes (Hospitalization, Other)
  Sender: FDA-Public Use
  Company Number: US-ASTRAZENECA-2021A326124

PATIENT

DRUGS (12)
  1. PRILOSEC [Suspect]
     Active Substance: OMEPRAZOLE MAGNESIUM
     Indication: GASTROOESOPHAGEAL REFLUX DISEASE
     Route: 048
  2. PRILOSEC [Suspect]
     Active Substance: OMEPRAZOLE MAGNESIUM
     Indication: GASTRIC ULCER
     Route: 048
  3. PRILOSEC [Suspect]
     Active Substance: OMEPRAZOLE MAGNESIUM
     Indication: GASTROOESOPHAGEAL REFLUX DISEASE
     Dosage: GENERIC
     Route: 048
  4. PRILOSEC [Suspect]
     Active Substance: OMEPRAZOLE MAGNESIUM
     Indication: GASTRIC ULCER
     Dosage: GENERIC
     Route: 048
  5. PREVACID 24 HR [Suspect]
     Active Substance: LANSOPRAZOLE
     Indication: GASTROOESOPHAGEAL REFLUX DISEASE
     Route: 065
  6. PRILOSEC [Suspect]
     Active Substance: OMEPRAZOLE MAGNESIUM
     Indication: GASTRIC ULCER
     Dosage: EVERY DAY
     Route: 048
     Dates: start: 200711, end: 201611
  7. PRILOSEC [Suspect]
     Active Substance: OMEPRAZOLE MAGNESIUM
     Indication: GASTROOESOPHAGEAL REFLUX DISEASE
     Dosage: EVERY DAY
     Route: 048
     Dates: start: 200711, end: 201611
  8. PREVACID [Suspect]
     Active Substance: LANSOPRAZOLE
     Indication: GASTROOESOPHAGEAL REFLUX DISEASE
     Route: 048
  9. NEXIUM 24HR [Suspect]
     Active Substance: ESOMEPRAZOLE MAGNESIUM
     Dosage: EVERY DAY
     Route: 048
     Dates: start: 200711, end: 201611
  10. PREVACID [Suspect]
     Active Substance: LANSOPRAZOLE
     Indication: GASTROOESOPHAGEAL REFLUX DISEASE
     Dosage: GENERIC
     Route: 048
  11. DEXILANT [Suspect]
     Active Substance: DEXLANSOPRAZOLE
     Indication: GASTROOESOPHAGEAL REFLUX DISEASE
     Dosage: EVERY DAY
     Route: 065
     Dates: start: 200711, end: 201611
  12. PREVACID [Suspect]
     Active Substance: LANSOPRAZOLE
     Indication: GASTROOESOPHAGEAL REFLUX DISEASE
     Dosage: GENERIC
     Route: 048
     Dates: start: 2016, end: 20200301

REACTIONS (37)
  - Hypertensive nephropathy [Unknown]
  - Nephropathy [Unknown]
  - Nocturia [Unknown]
  - Urinary incontinence [Unknown]
  - Micturition urgency [Unknown]
  - Nephrogenic anaemia [Unknown]
  - Albuminuria [Unknown]
  - Renal tubular atrophy [Unknown]
  - Diabetic nephropathy [Unknown]
  - Dysuria [Unknown]
  - Device dependence [Unknown]
  - Haemodialysis [Unknown]
  - Renal impairment [Unknown]
  - Oliguria [Unknown]
  - Renal haematoma [Unknown]
  - Renal tubular necrosis [Unknown]
  - Renal cyst [Unknown]
  - Dialysis [Unknown]
  - Chronic kidney disease [Unknown]
  - Acute kidney injury [Unknown]
  - Pyelonephritis [Unknown]
  - Glomerulonephritis chronic [Unknown]
  - Kidney fibrosis [Unknown]
  - Microalbuminuria [Unknown]
  - Pollakiuria [Unknown]
  - Anuria [Unknown]
  - Cardiorenal syndrome [Unknown]
  - End stage renal disease [Unknown]
  - Intercapillary glomerulosclerosis [Unknown]
  - Nephritic syndrome [Unknown]
  - Proteinuria [Unknown]
  - Tubulointerstitial nephritis [Unknown]
  - Renal failure [Unknown]
  - Renal disorder [Unknown]
  - Renal colic [Unknown]
  - Focal segmental glomerulosclerosis [Unknown]
  - Polyuria [Unknown]
